FAERS Safety Report 8596666-5 (Version None)
Quarter: 2012Q3

REPORT INFORMATION
  Report Type: 
  Country: None (occurrence: None)
  Receive Date: 20120815
  Receipt Date: 20120629
  Transmission Date: 20120928
  Serious: No
  Sender: FDA-Public Use
  Company Number: US-ASTRAZENECA-2012SE44623

PATIENT
  Age: 65 Year
  Sex: Female
  Weight: 115.2 kg

DRUGS (6)
  1. ALBUTEROL [Concomitant]
  2. DIOVAN [Concomitant]
  3. CELEBREX [Concomitant]
  4. LEVOXYL [Concomitant]
  5. SYMBICORT [Suspect]
     Indication: ASTHMA
     Route: 055
  6. BYSTOLIC [Concomitant]

REACTIONS (5)
  - DRUG EFFECT DECREASED [None]
  - INTERVERTEBRAL DISC DEGENERATION [None]
  - ARTHRITIS [None]
  - DRUG DOSE OMISSION [None]
  - ARTHRALGIA [None]
